FAERS Safety Report 15930841 (Version 1)
Quarter: 2019Q1

REPORT INFORMATION
  Report Type: Spontaneous
  Country: CA (occurrence: CA)
  Receive Date: 20190207
  Receipt Date: 20190207
  Transmission Date: 20190417
  Serious: Yes (Life-Threatening)
  Sender: FDA-Public Use
  Company Number: CA-ROCHE-2255808

PATIENT
  Age: 59 Year
  Sex: Female

DRUGS (1)
  1. OMALIZUMAB. [Suspect]
     Active Substance: OMALIZUMAB
     Indication: ASTHMA
     Route: 065

REACTIONS (10)
  - Dermatomyositis [Unknown]
  - Skin hypertrophy [Unknown]
  - Telangiectasia [Unknown]
  - Erythema [Unknown]
  - Papule [Unknown]
  - Dermatitis [Unknown]
  - Muscular weakness [Unknown]
  - Rash erythematous [Recovering/Resolving]
  - Poikiloderma [Unknown]
  - Pruritus [Recovering/Resolving]
